FAERS Safety Report 19036634 (Version 1)
Quarter: 2021Q1

REPORT INFORMATION
  Report Type: Spontaneous
  Country: CA (occurrence: CA)
  Receive Date: 20210322
  Receipt Date: 20210322
  Transmission Date: 20210420
  Serious: Yes (Hospitalization)
  Sender: FDA-Public Use
  Company Number: CA-CELLTRION INC.-2021CA003651

PATIENT

DRUGS (4)
  1. INFLECTRA [Suspect]
     Active Substance: INFLIXIMAB-DYYB
     Indication: CROHN^S DISEASE
     Dosage: 1400 MG, EVERY 8 WEEKS
     Route: 042
  2. METHOTREXATE. [Concomitant]
     Active Substance: METHOTREXATE
     Dosage: 1 DF, WEEKLY
  3. INFLECTRA [Suspect]
     Active Substance: INFLIXIMAB-DYYB
     Dosage: 1400 MG (Q 0, 2 AND 6 WEEKS, THEN EVERY 8 WEEKS)
     Route: 042
  4. PANTOLOC [PANTOPRAZOLE] [Concomitant]
     Active Substance: PANTOPRAZOLE SODIUM
     Dosage: 1 DF (DOSAGE INFORMATION NOT AVAILABLE)

REACTIONS (7)
  - Abdominal pain [Unknown]
  - Arthralgia [Not Recovered/Not Resolved]
  - Feeling abnormal [Unknown]
  - Off label use [Unknown]
  - Product use issue [Unknown]
  - Bowel movement irregularity [Unknown]
  - Joint swelling [Not Recovered/Not Resolved]

NARRATIVE: CASE EVENT DATE: 20210310
